FAERS Safety Report 21104586 (Version 1)
Quarter: 2022Q3

REPORT INFORMATION
  Report Type: Other
  Country: US (occurrence: None)
  Receive Date: 20220720
  Receipt Date: 20220720
  Transmission Date: 20221027
  Serious: Yes (Hospitalization)
  Sender: FDA-Public Use
  Company Number: US-ROCHE-3137715

PATIENT
  Age: 8 Decade
  Sex: Female

DRUGS (2)
  1. ATEZOLIZUMAB [Suspect]
     Active Substance: ATEZOLIZUMAB
     Indication: Hepatocellular carcinoma
     Route: 065
  2. BEVACIZUMAB [Concomitant]
     Active Substance: BEVACIZUMAB
     Indication: Hepatocellular carcinoma

REACTIONS (5)
  - Type 1 diabetes mellitus [Unknown]
  - Pancreatic atrophy [Unknown]
  - Stress cardiomyopathy [Unknown]
  - Diabetic ketoacidosis [Unknown]
  - Hyponatraemia [Unknown]
